FAERS Safety Report 4308883-0 (Version None)
Quarter: 2004Q1

REPORT INFORMATION
  Report Type: 
  Country: None (occurrence: None)
  Receive Date: 20040302
  Receipt Date: 20040223
  Transmission Date: 20041129
  Serious: Yes (Death, Hospitalization)
  Sender: FDA-Public Use
  Company Number: PHBS2004NO02514

PATIENT
  Age: 26 Year
  Sex: Male

DRUGS (2)
  1. LEPONEX [Suspect]
     Indication: SCHIZOPHRENIA
     Dosage: 300 MG, QD
     Route: 065
     Dates: start: 20020617
  2. ANAESTHETICS [Concomitant]

REACTIONS (4)
  - ABDOMINAL INFECTION [None]
  - APPENDICITIS PERFORATED [None]
  - CARDIAC ARREST [None]
  - MYOCARDITIS [None]
